FAERS Safety Report 7002173-3 (Version None)
Quarter: 2010Q3

REPORT INFORMATION
  Report Type: 
  Country: None (occurrence: None)
  Receive Date: 20100920
  Receipt Date: 20100517
  Transmission Date: 20110219
  Serious: Yes (Other)
  Sender: FDA-Public Use
  Company Number: US-ASTRAZENECA-2007UW11597

PATIENT
  Sex: Female

DRUGS (3)
  1. SEROQUEL [Suspect]
     Route: 048
     Dates: start: 20011115
  2. CLONAZEPAM [Concomitant]
     Dates: start: 20011103
  3. ALLEGRA [Concomitant]
     Dates: start: 20020225

REACTIONS (2)
  - DIABETES MELLITUS [None]
  - DIABETIC KETOACIDOSIS [None]
